FAERS Safety Report 7248790-7 (Version None)
Quarter: 2011Q1

REPORT INFORMATION
  Report Type: 
  Country: None (occurrence: None)
  Receive Date: 20110121
  Receipt Date: 20110121
  Transmission Date: 20110831
  Serious: Yes (Hospitalization)
  Sender: FDA-Public Use
  Company Number: None

PATIENT
  Sex: Male

DRUGS (1)
  1. BOCA ULTILET ALCHOL SWABS TRIAD [Suspect]
     Dosage: USED WITH NEEDLES/SYRINGES

REACTIONS (4)
  - SWELLING [None]
  - ERYTHEMA [None]
  - SKIN INFECTION [None]
  - PAIN [None]
